FAERS Safety Report 7799248-8 (Version None)
Quarter: 2011Q4

REPORT INFORMATION
  Report Type: 
  Country: None (occurrence: None)
  Receive Date: 20111006
  Receipt Date: 20100923
  Transmission Date: 20120403
  Serious: No
  Sender: FDA-Public Use
  Company Number: US-GLAXOSMITHKLINE-A0882962A

PATIENT
  Age: 40 Year
  Sex: Female

DRUGS (3)
  1. DUAC [Suspect]
     Indication: ACNE
     Dosage: 1APP UNKNOWN
     Route: 061
     Dates: start: 20100918, end: 20100919
  2. SELF-TANNING LOTION [Concomitant]
  3. SOAP FREE CLEANSER [Concomitant]

REACTIONS (2)
  - THERMAL BURN [None]
  - ERYTHEMA [None]
